FAERS Safety Report 15343133 (Version 4)
Quarter: 2018Q3

REPORT INFORMATION
  Report Type: Report from Study
  Country: FR (occurrence: FR)
  Receive Date: 20180903
  Receipt Date: 20180911
  Transmission Date: 20181010
  Serious: Yes (Life-Threatening, Hospitalization, Other)
  Sender: FDA-Public Use
  Company Number: FR-BRISTOL-MYERS SQUIBB COMPANY-BMS-2018-069476

PATIENT
  Age: 64 Year
  Sex: Female
  Weight: 95 kg

DRUGS (5)
  1. NIVOLUMAB [Suspect]
     Active Substance: NIVOLUMAB
     Indication: METASTATIC RENAL CELL CARCINOMA
     Dosage: 315 MG, UNK
     Route: 042
     Dates: start: 20180427, end: 20180629
  2. METFORMIN [Concomitant]
     Active Substance: METFORMIN HYDROCHLORIDE
     Indication: DIABETES MELLITUS
     Dosage: 1000 MG, UNK
     Route: 048
     Dates: start: 20180716
  3. MEDROL [Concomitant]
     Active Substance: METHYLPREDNISOLONE
     Indication: HEPATIC FUNCTION ABNORMAL
     Dosage: 100 MG, UNK
     Route: 048
     Dates: start: 20180716
  4. IPILIMUMAB [Suspect]
     Active Substance: IPILIMUMAB
     Indication: METASTATIC RENAL CELL CARCINOMA
     Dosage: 105 MG, UNK
     Route: 042
     Dates: start: 20180427, end: 20180629
  5. COAPROVEL [Concomitant]
     Active Substance: HYDROCHLOROTHIAZIDE\IRBESARTAN
     Indication: HYPERTENSION
     Dosage: 1 DF, UNK
     Route: 048

REACTIONS (3)
  - Histiocytosis haematophagic [Recovered/Resolved]
  - Encephalitis autoimmune [Recovered/Resolved]
  - Autoimmune hepatitis [Recovering/Resolving]

NARRATIVE: CASE EVENT DATE: 20180716
